FAERS Safety Report 15222933 (Version 1)
Quarter: 2018Q3

REPORT INFORMATION
  Report Type: Spontaneous
  Country: US (occurrence: US)
  Receive Date: 20180705
  Receipt Date: 20180705
  Transmission Date: 20181010
  Serious: Yes (Disabling)
  Sender: FDA-Public Use
  Company Number: None

PATIENT
  Age: 78 Year
  Sex: Male
  Weight: 118 kg

DRUGS (1)
  1. GENTEAL MILD TO MODERATE [Suspect]
     Active Substance: HYPROMELLOSE 2910 (4000 MPA.S)
     Indication: EYE LUBRICATION THERAPY
     Route: 047
     Dates: start: 20171027, end: 20171027

REACTIONS (3)
  - Ocular hyperaemia [None]
  - Eye irritation [None]
  - Medical device repositioning [None]

NARRATIVE: CASE EVENT DATE: 20171027
